FAERS Safety Report 20013410 (Version 6)
Quarter: 2022Q4

REPORT INFORMATION
  Report Type: Other
  Country: KR (occurrence: None)
  Receive Date: 20211029
  Receipt Date: 20221205
  Transmission Date: 20230113
  Serious: Yes (Hospitalization, Other)
  Sender: FDA-Public Use
  Company Number: KR-ROCHE-2942951

PATIENT
  Age: 75 Year
  Sex: Male

DRUGS (14)
  1. ATEZOLIZUMAB [Suspect]
     Active Substance: ATEZOLIZUMAB
     Indication: Non-small cell lung cancer metastatic
     Dosage: NEXT DOSES ON 29/JUL/2021, 19/AUG/2021, 09/SEP/2021, 30/SEP/2021, 21/OCT/2021
     Route: 041
     Dates: start: 20210708
  2. ATEZOLIZUMAB [Suspect]
     Active Substance: ATEZOLIZUMAB
     Route: 042
     Dates: start: 20210729, end: 20210729
  3. ATEZOLIZUMAB [Suspect]
     Active Substance: ATEZOLIZUMAB
     Route: 042
     Dates: start: 20210819, end: 20210819
  4. ATEZOLIZUMAB [Suspect]
     Active Substance: ATEZOLIZUMAB
     Route: 042
     Dates: start: 20210909, end: 20210909
  5. ATEZOLIZUMAB [Suspect]
     Active Substance: ATEZOLIZUMAB
     Route: 042
     Dates: start: 20210930, end: 20210930
  6. ATEZOLIZUMAB [Suspect]
     Active Substance: ATEZOLIZUMAB
     Route: 042
     Dates: start: 20211021, end: 20211021
  7. GASTER [Concomitant]
     Active Substance: FAMOTIDINE
     Route: 048
     Dates: start: 20190227
  8. STALEVO [Concomitant]
     Active Substance: CARBIDOPA\ENTACAPONE\LEVODOPA
     Indication: Infarction
     Route: 048
     Dates: start: 20200422
  9. PLAVIX [Concomitant]
     Active Substance: CLOPIDOGREL BISULFATE
     Indication: Infarction
     Route: 048
     Dates: start: 20210712
  10. LIPIDIL [Concomitant]
     Active Substance: FENOFIBRATE
     Indication: Hyperlipidaemia
     Route: 048
     Dates: start: 20210724
  11. MEGACE [Concomitant]
     Active Substance: MEGESTROL ACETATE
  12. POLYBUTINE [Concomitant]
     Indication: Gastritis
     Dates: start: 20211021
  13. NEPHVITA [Concomitant]
     Dates: start: 20211021
  14. FOTAGEL [Concomitant]
     Indication: Diarrhoea
     Dates: start: 20211025, end: 20211027

REACTIONS (3)
  - Asthenia [Recovering/Resolving]
  - Azotaemia [Recovering/Resolving]
  - Diarrhoea [Recovering/Resolving]

NARRATIVE: CASE EVENT DATE: 20210723
